FAERS Safety Report 7465484-3 (Version None)
Quarter: 2011Q2

REPORT INFORMATION
  Report Type: 
  Country: None (occurrence: None)
  Receive Date: 20110509
  Receipt Date: 20080403
  Transmission Date: 20111010
  Serious: No
  Sender: FDA-Public Use
  Company Number: US-BAYER-200819108NA

PATIENT
  Age: 66 Year
  Sex: Male
  Weight: 72.562 kg

DRUGS (13)
  1. VIOXX [Concomitant]
     Dosage: 15 MG, PRN
  2. ACETYLSALICYLIC ACID SRT [Concomitant]
     Dosage: 325 MG, QD
  3. AMICAR [Concomitant]
     Dosage: 5 G, UNK
     Dates: start: 20040809
  4. TRASYLOL [Suspect]
     Indication: CORONARY ARTERY BYPASS
     Route: 042
     Dates: start: 20040809
  5. LIPITOR [Concomitant]
     Dosage: 40 MG, QD
  6. HEPARIN [Concomitant]
     Route: 042
  7. ANCEF [Concomitant]
     Route: 042
  8. PROTAMINE [Concomitant]
     Route: 042
  9. MORPHINE [Concomitant]
     Route: 042
  10. PEPCID [Concomitant]
     Dosage: 20 MG, UNK
     Route: 042
  11. GENTAMICIN [Concomitant]
     Dosage: 60 MG, UNK
     Route: 042
  12. DIGOXIN [Concomitant]
     Route: 042
  13. PROPOFOL [Concomitant]
     Route: 042

REACTIONS (2)
  - UNEVALUABLE EVENT [None]
  - INJURY [None]
